FAERS Safety Report 8067400-2 (Version None)
Quarter: 2012Q1

REPORT INFORMATION
  Report Type: 
  Country: None (occurrence: None)
  Receive Date: 20120124
  Receipt Date: 20120119
  Transmission Date: 20120608
  Serious: Yes (Other)
  Sender: FDA-Public Use
  Company Number: BR-BAYER-2011-112386

PATIENT
  Age: 21 Year
  Sex: Female
  Weight: 70 kg

DRUGS (2)
  1. AVELOX [Suspect]
     Indication: URINARY TRACT INFECTION
     Dosage: 1 DF, ONCE
     Route: 048
     Dates: start: 20111119, end: 20111119
  2. PREDNISONE [Concomitant]
     Indication: PHARYNGITIS
     Dosage: 1 DF, QD
     Route: 048
     Dates: start: 20111119

REACTIONS (2)
  - GENERALISED ERYTHEMA [None]
  - PRURITUS GENERALISED [None]
